FAERS Safety Report 5949102-9 (Version None)
Quarter: 2008Q4

REPORT INFORMATION
  Report Type: 
  Country: None (occurrence: None)
  Receive Date: 20081111
  Receipt Date: 20081105
  Transmission Date: 20090506
  Serious: No
  Sender: FDA-Public Use
  Company Number: US-B.I. PHARMACEUTICALS,INC./RIDGEFIELD-2008-BP-16737BP

PATIENT
  Sex: Male

DRUGS (6)
  1. FLOMAX [Suspect]
     Indication: BENIGN PROSTATIC HYPERPLASIA
     Dosage: .4MG
     Route: 048
     Dates: start: 20060801, end: 20081105
  2. AVODART [Concomitant]
     Indication: BENIGN PROSTATIC HYPERPLASIA
     Dates: start: 20070101
  3. LOPRESSOR [Concomitant]
     Indication: ATRIAL FIBRILLATION
  4. ASPIRIN [Concomitant]
  5. FERROUS SUFATE [Concomitant]
     Indication: ANAEMIA
  6. CHOLESTYRAMINE [Concomitant]
     Indication: CROHN'S DISEASE

REACTIONS (4)
  - POSTNASAL DRIP [None]
  - PRODUCTIVE COUGH [None]
  - RETROGRADE EJACULATION [None]
  - RHINORRHOEA [None]
